FAERS Safety Report 10803841 (Version 1)
Quarter: 2015Q1

REPORT INFORMATION
  Report Type: Spontaneous
  Country: TR (occurrence: TR)
  Receive Date: 20150217
  Receipt Date: 20150217
  Transmission Date: 20150721
  Serious: Yes (Other)
  Sender: FDA-Public Use
  Company Number: TR-BAXTER-2015BAX007999

PATIENT
  Age: 35 Year
  Sex: Male

DRUGS (1)
  1. SUPRANE [Suspect]
     Active Substance: DESFLURANE
     Indication: INDUCTION OF ANAESTHESIA
     Route: 055
     Dates: start: 20150121, end: 20150121

REACTIONS (6)
  - Corneal oedema [Recovered/Resolved]
  - Eye oedema [Recovered/Resolved]
  - Accidental exposure to product [Recovered/Resolved]
  - Visual impairment [Unknown]
  - Exposure via direct contact [Recovered/Resolved]
  - Vision blurred [Unknown]

NARRATIVE: CASE EVENT DATE: 20150121
